FAERS Safety Report 5054411-4 (Version None)
Quarter: 2006Q3

REPORT INFORMATION
  Report Type: 
  Country: None (occurrence: None)
  Receive Date: 20060713
  Receipt Date: 20060627
  Transmission Date: 20061208
  Serious: Yes (Hospitalization, Other)
  Sender: FDA-Public Use
  Company Number: 28489

PATIENT
  Age: 65 Year
  Sex: Female

DRUGS (1)
  1. LEUCOVORIN CALCIUM [Suspect]
     Indication: NEUROENDOCRINE TUMOUR
     Dosage: 390MG, 200MG/M2/EVERY 2 WEE
     Dates: start: 20060428

REACTIONS (6)
  - ABDOMINAL PAIN [None]
  - AORTIC THROMBOSIS [None]
  - BLOOD PRESSURE INCREASED [None]
  - CHEST PAIN [None]
  - DYSPNOEA [None]
  - VOMITING [None]
